FAERS Safety Report 14589329 (Version 1)
Quarter: 2018Q1

REPORT INFORMATION
  Report Type: Report from Study
  Country: BR (occurrence: BR)
  Receive Date: 20180302
  Receipt Date: 20180302
  Transmission Date: 20180509
  Serious: Yes (Other)
  Sender: FDA-Public Use
  Company Number: BR-BIOGEN-2017BI00373777

PATIENT
  Sex: Female

DRUGS (2)
  1. VITAMIN C [Concomitant]
     Active Substance: ASCORBIC ACID
     Indication: PRODUCT USED FOR UNKNOWN INDICATION
     Route: 065
  2. AVONEX [Suspect]
     Active Substance: INTERFERON BETA-1A
     Indication: MULTIPLE SCLEROSIS
     Route: 030
     Dates: start: 20110925, end: 20121206

REACTIONS (9)
  - Central nervous system lesion [Not Recovered/Not Resolved]
  - Gait disturbance [Recovered/Resolved]
  - Malaise [Recovered/Resolved]
  - Pyrexia [Unknown]
  - Multiple sclerosis [Unknown]
  - Paralysis [Unknown]
  - Musculoskeletal disorder [Not Recovered/Not Resolved]
  - Asthenia [Recovered/Resolved]
  - Multiple sclerosis relapse [Recovered/Resolved with Sequelae]

NARRATIVE: CASE EVENT DATE: 2012
